FAERS Safety Report 22241131 (Version 1)
Quarter: 2023Q2

REPORT INFORMATION
  Report Type: Spontaneous
  Country: US (occurrence: US)
  Receive Date: 20230421
  Receipt Date: 20230421
  Transmission Date: 20230721
  Serious: Yes (Other)
  Sender: FDA-Public Use
  Company Number: US-002147023-NVSC2023US085916

PATIENT
  Age: 3 Year
  Sex: Male

DRUGS (8)
  1. DEFERASIROX [Suspect]
     Active Substance: DEFERASIROX
     Indication: Thalassaemia beta
     Dosage: 67 MG, BID
     Route: 065
  2. DEFERASIROX [Suspect]
     Active Substance: DEFERASIROX
     Indication: Iron overload
     Dosage: TITRATING TO 250 MG BID (16.6 MG/KG)
     Route: 065
  3. DEFERASIROX [Suspect]
     Active Substance: DEFERASIROX
     Dosage: 125 MG, BID
     Route: 065
  4. DEFERASIROX [Suspect]
     Active Substance: DEFERASIROX
     Dosage: TITRATED TO 125 MG TID (23 MG/KG)
     Route: 065
  5. DEFERIPRONE [Suspect]
     Active Substance: DEFERIPRONE
     Indication: Thalassaemia beta
     Dosage: 250 MG, TID
     Route: 065
  6. DEFERIPRONE [Suspect]
     Active Substance: DEFERIPRONE
     Indication: Iron overload
     Dosage: TITRATED TO 450 MG TID
     Route: 065
  7. UROCIT-K [Concomitant]
     Active Substance: POTASSIUM CITRATE
     Indication: Product used for unknown indication
     Dosage: 16 MEQ, BID
     Route: 065
  8. UROCIT-K [Concomitant]
     Active Substance: POTASSIUM CITRATE
     Dosage: 18 MEQ, TID
     Route: 065

REACTIONS (3)
  - Nephrolithiasis [Recovered/Resolved]
  - Nephrolithiasis [Recovered/Resolved]
  - Product use issue [Unknown]
